FAERS Safety Report 8155546-X (Version None)
Quarter: 2012Q1

REPORT INFORMATION
  Report Type: 
  Country: None (occurrence: None)
  Receive Date: 20120215
  Receipt Date: 20120203
  Transmission Date: 20120608
  Serious: Yes (Other)
  Sender: FDA-Public Use
  Company Number: GER/GER/11/0022336

PATIENT
  Age: 27 Year
  Sex: Female
  Weight: 50 kg

DRUGS (5)
  1. CIPROFLOXACIN HYDROCHLORIDE [Suspect]
     Indication: STAPHYLOCOCCAL INFECTION
     Dosage: 500 MG, 2 IN 1 D, ORAL
     Route: 048
     Dates: start: 20111203, end: 20111207
  2. CIPROFLOXACIN HYDROCHLORIDE [Suspect]
     Indication: BRONCHITIS
     Dosage: 500 MG, 2 IN 1 D, ORAL
     Route: 048
     Dates: start: 20111203, end: 20111207
  3. DESMIN (DESMOPRESSIN ACETATE) [Concomitant]
  4. CIPRO [Suspect]
     Indication: STAPHYLOCOCCAL INFECTION
     Dosage: 500 MG, 2 IN 1 D, ORAL
     Route: 048
     Dates: start: 20111208, end: 20111212
  5. LYRICA [Concomitant]

REACTIONS (3)
  - VISION BLURRED [None]
  - KERATITIS [None]
  - DIPLOPIA [None]
